FAERS Safety Report 25124110 (Version 6)
Quarter: 2025Q4

REPORT INFORMATION
  Report Type: Spontaneous
  Country: US (occurrence: US)
  Receive Date: 20250326
  Receipt Date: 20251106
  Transmission Date: 20260117
  Serious: Yes (Hospitalization)
  Sender: SANOFI AVENTIS
  Company Number: US-SA-2025SA086798

PATIENT
  Age: 53 Year
  Sex: Female

DRUGS (6)
  1. DUPIXENT [Suspect]
     Active Substance: DUPILUMAB
     Indication: Asthma
     Dosage: 600 MG, 1X
     Route: 058
     Dates: start: 20250320, end: 20250320
  2. DUPIXENT [Suspect]
     Active Substance: DUPILUMAB
     Indication: Chronic obstructive pulmonary disease
     Dosage: 300 MG, QOW
     Route: 058
     Dates: start: 202504
  3. PREDNISONE [Concomitant]
     Active Substance: PREDNISONE
     Dosage: UNK
  4. ATROVENT [Concomitant]
     Active Substance: IPRATROPIUM BROMIDE
     Dosage: MORE THAN TWICE A DAY
  5. ALBUTEROL [Concomitant]
     Active Substance: ALBUTEROL
     Dosage: UNK
  6. PULMICORT TURBUHALER [Concomitant]
     Active Substance: BUDESONIDE
     Dosage: TWICE IN A DAY

REACTIONS (23)
  - Hospitalisation [Unknown]
  - Cough [Not Recovered/Not Resolved]
  - Aphonia [Not Recovered/Not Resolved]
  - Dyspnoea [Recovering/Resolving]
  - Chest discomfort [Unknown]
  - Blood urea abnormal [Unknown]
  - Creatinine urine abnormal [Unknown]
  - Urine calcium [Unknown]
  - Blood creatinine increased [Not Recovered/Not Resolved]
  - Abdominal pain upper [Unknown]
  - Pain [Unknown]
  - Migraine [Unknown]
  - Nausea [Not Recovered/Not Resolved]
  - Diarrhoea [Not Recovered/Not Resolved]
  - Burning sensation [Unknown]
  - Myalgia [Unknown]
  - Asthma [Recovering/Resolving]
  - Cough [Recovering/Resolving]
  - Chest discomfort [Recovering/Resolving]
  - Chest pain [Recovering/Resolving]
  - Injection site erythema [Recovered/Resolved]
  - Injection site swelling [Recovered/Resolved]
  - Injection site pain [Unknown]

NARRATIVE: CASE EVENT DATE: 20250101
